FAERS Safety Report 15760931 (Version 1)
Quarter: 2018Q4

REPORT INFORMATION
  Report Type: Spontaneous
  Country: US (occurrence: US)
  Receive Date: 20181226
  Receipt Date: 20181226
  Transmission Date: 20190205
  Serious: No
  Sender: FDA-Public Use
  Company Number: US-PFIZER INC-2018528970

PATIENT
  Age: 60 Year
  Sex: Female
  Weight: 89 kg

DRUGS (1)
  1. IBRANCE [Suspect]
     Active Substance: PALBOCICLIB
     Indication: BONE CANCER
     Dosage: 75 MG, CYCLIC (1 DAILY ON DAYS 1-21 EVERY 28 DAYS)
     Route: 048
     Dates: start: 20180509

REACTIONS (3)
  - Alopecia [Unknown]
  - Fatigue [Unknown]
  - Product use in unapproved indication [Unknown]

NARRATIVE: CASE EVENT DATE: 20180509
